FAERS Safety Report 8076262-9 (Version None)
Quarter: 2012Q1

REPORT INFORMATION
  Report Type: 
  Country: None (occurrence: None)
  Receive Date: 20120123
  Receipt Date: 20120111
  Transmission Date: 20120608
  Serious: Yes (Hospitalization)
  Sender: FDA-Public Use
  Company Number: 2012SP003085

PATIENT
  Sex: Female

DRUGS (1)
  1. VICTRELIS [Suspect]
     Indication: PRODUCT USED FOR UNKNOWN INDICATION
     Dosage: 800 MG, TID, PO
     Route: 048

REACTIONS (4)
  - IMMUNE SYSTEM DISORDER [None]
  - APHAGIA [None]
  - GASTROINTESTINAL DISORDER [None]
  - INSOMNIA [None]
